FAERS Safety Report 21664662 (Version 1)
Quarter: 2022Q4

REPORT INFORMATION
  Report Type: Spontaneous
  Country: US (occurrence: US)
  Receive Date: 20221130
  Receipt Date: 20221130
  Transmission Date: 20230113
  Serious: Yes (Other)
  Sender: FDA-Public Use
  Company Number: US-HORIZON THERAPEUTICS-HZN-2022-009198

PATIENT

DRUGS (2)
  1. TEPEZZA [Suspect]
     Active Substance: TEPROTUMUMAB-TRBW
     Indication: Product used for unknown indication
     Dosage: UNK (INFUSION 1)
     Route: 042
  2. UNSPECIFIED INGREDIENT [Suspect]
     Active Substance: UNSPECIFIED INGREDIENT
     Indication: Eye inflammation
     Dosage: UNK (FIRST DOSE)
     Route: 065

REACTIONS (6)
  - Blood glucose increased [Unknown]
  - Blood pressure systolic increased [Recovering/Resolving]
  - Hyperthyroidism [Unknown]
  - Visual impairment [Unknown]
  - Gait disturbance [Unknown]
  - Eye inflammation [Unknown]
